FAERS Safety Report 4589700-0 (Version None)
Quarter: 2005Q1

REPORT INFORMATION
  Report Type: 
  Country: None (occurrence: None)
  Receive Date: 20050217
  Receipt Date: 20050201
  Transmission Date: 20050727
  Serious: Yes (Hospitalization)
  Sender: FDA-Public Use
  Company Number: DSA_25743_2005

PATIENT
  Age: 81 Year
  Sex: Female

DRUGS (9)
  1. TILDIEM [Suspect]
     Indication: TACHYCARDIA
     Dosage: 60 MG UNK PO
     Route: 048
     Dates: start: 20041216, end: 20041217
  2. CLAMOXYL [Concomitant]
  3. PROPRANOLOL HYDROCHLORIDE [Concomitant]
  4. SOLU-MEDROL [Concomitant]
  5. BRICANYL [Concomitant]
  6. PREVISCAN [Concomitant]
  7. CORDARONE [Concomitant]
  8. LASILIX [Concomitant]
  9. NITRODERM [Concomitant]

REACTIONS (2)
  - ALANINE AMINOTRANSFERASE INCREASED [None]
  - ASPARTATE AMINOTRANSFERASE INCREASED [None]
